FAERS Safety Report 25765182 (Version 1)
Quarter: 2025Q3

REPORT INFORMATION
  Report Type: Spontaneous
  Country: US (occurrence: US)
  Receive Date: 20250905
  Receipt Date: 20250905
  Transmission Date: 20251020
  Serious: No
  Sender: STRIDES
  Company Number: US-STRIDES ARCOLAB LIMITED-2024SP009853

PATIENT
  Age: 49 Year
  Sex: Male

DRUGS (2)
  1. ROSUVASTATIN [Suspect]
     Active Substance: ROSUVASTATIN
     Indication: Hypocholesterolaemia
     Route: 065
  2. EVOLOCUMAB [Suspect]
     Active Substance: EVOLOCUMAB
     Indication: Hypocholesterolaemia
     Route: 065

REACTIONS (1)
  - Treatment noncompliance [Unknown]
